FAERS Safety Report 20840984 (Version 1)
Quarter: 2022Q2

REPORT INFORMATION
  Report Type: Spontaneous
  Country: US (occurrence: US)
  Receive Date: 20220517
  Receipt Date: 20220517
  Transmission Date: 20220721
  Serious: No
  Sender: FDA-Public Use
  Company Number: US-PFIZER INC-202101760944

PATIENT
  Age: 73 Year
  Sex: Female
  Weight: 63.492 kg

DRUGS (4)
  1. SILDENAFIL CITRATE [Suspect]
     Active Substance: SILDENAFIL CITRATE
     Dosage: UNK
  2. REMODULIN [Suspect]
     Active Substance: TREPROSTINIL
     Indication: Hypertension
     Dosage: 0.014 UG/KG
     Route: 041
     Dates: start: 20211115
  3. AMBRISENTAN [Suspect]
     Active Substance: AMBRISENTAN
     Dosage: UNK
  4. ELIQUIS [Concomitant]
     Active Substance: APIXABAN
     Dosage: UNK

REACTIONS (6)
  - Pain [Unknown]
  - Arthralgia [Unknown]
  - Back pain [Unknown]
  - Illness [Unknown]
  - Hypotension [Unknown]
  - Memory impairment [Unknown]

NARRATIVE: CASE EVENT DATE: 20211101
